FAERS Safety Report 9876110 (Version 2)
Quarter: 2014Q2

REPORT INFORMATION
  Report Type: Spontaneous
  Country: JP (occurrence: None)
  Receive Date: 20140204
  Receipt Date: 20140506
  Transmission Date: 20141212
  Serious: Yes (Hospitalization)
  Sender: FDA-Public Use
  Company Number: ABR_01472_2014

PATIENT
  Age: 72 Year
  Sex: Female
  Weight: 50.4 kg

DRUGS (2)
  1. GLIADEL [Suspect]
     Indication: MALIGNANT GLIOMA
     Dosage: INTRACERERAL
     Dates: start: 20131105, end: 20131105
  2. FOSPHENTOIN SODIUM [Concomitant]

REACTIONS (4)
  - Hemiparesis [None]
  - Pneumocephalus [None]
  - Brain midline shift [None]
  - Oedema [None]
